FAERS Safety Report 18150067 (Version 5)
Quarter: 2020Q4

REPORT INFORMATION
  Report Type: Spontaneous
  Country: US (occurrence: US)
  Receive Date: 20200814
  Receipt Date: 20201217
  Transmission Date: 20210113
  Serious: No
  Sender: FDA-Public Use
  Company Number: US-PFIZER INC-2020297269

PATIENT
  Age: 77 Year
  Sex: Male
  Weight: 51.71 kg

DRUGS (1)
  1. GENOTROPIN [Suspect]
     Active Substance: SOMATROPIN
     Indication: OSTEOPOROSIS
     Dosage: 0.4 MG, 1X/DAY (0.4 INJECTION; ONCE A DAY)
     Route: 065
     Dates: start: 20191123

REACTIONS (4)
  - Product dose omission issue [Unknown]
  - Product use issue [Unknown]
  - Arthralgia [Unknown]
  - Body height decreased [Unknown]

NARRATIVE: CASE EVENT DATE: 20200803
